FAERS Safety Report 10153113 (Version 1)
Quarter: 2014Q2

REPORT INFORMATION
  Report Type: Spontaneous
  Country: DE (occurrence: DE)
  Receive Date: 20140505
  Receipt Date: 20140505
  Transmission Date: 20141212
  Serious: Yes (Congenital Anomaly, Other)
  Sender: FDA-Public Use
  Company Number: DE-WATSON-2014-08829

PATIENT
  Age: 1 Day
  Sex: Male
  Weight: 4 kg

DRUGS (4)
  1. LAMOTRIGINE (UNKNOWN) [Suspect]
     Indication: EPILEPSY
     Dosage: 300 MG, DAILY
     Route: 064
     Dates: end: 20131010
  2. LAMOTRIGINE (UNKNOWN) [Suspect]
     Dosage: 150 MG, DAILY
     Route: 064
     Dates: start: 20130109
  3. FOLIC ACID [Concomitant]
     Indication: PROPHYLAXIS OF NEURAL TUBE DEFECT
     Dosage: 0.8 MG, DAILY
     Route: 064
     Dates: start: 20130209, end: 20131010
  4. CEFUROXIM                          /00454602/ [Concomitant]
     Indication: URINARY TRACT INFECTION
     Dosage: 1000 MG, DAILY
     Route: 064

REACTIONS (2)
  - Cataract congenital [Recovered/Resolved with Sequelae]
  - Foetal exposure during pregnancy [Recovered/Resolved with Sequelae]
